FAERS Safety Report 9382016 (Version 3)
Quarter: 2013Q3

REPORT INFORMATION
  Report Type: Spontaneous
  Country: US (occurrence: US)
  Receive Date: 20130703
  Receipt Date: 20130801
  Transmission Date: 20140515
  Serious: Yes (Death, Hospitalization)
  Sender: FDA-Public Use
  Company Number: US-INCYTE CORPORATION-2013IN001385

PATIENT
  Age: 71 Year
  Sex: Male

DRUGS (14)
  1. JAKAFI [Suspect]
     Indication: MYELOFIBROSIS
     Dosage: 20 MG, BID
     Route: 048
     Dates: start: 2013
  2. JAKAFI [Suspect]
     Dosage: 20 MG, BID
     Route: 048
     Dates: start: 20130318
  3. REMERON [Concomitant]
  4. NORTRIPTYLINE [Concomitant]
  5. NYSTATIN [Concomitant]
  6. CRESTOR [Concomitant]
  7. FLOMAX [Concomitant]
  8. TRAMADOL [Concomitant]
  9. LORAZEPAM [Concomitant]
  10. ALLOPURINOL [Concomitant]
  11. LASIX [Concomitant]
  12. HEPARIN [Concomitant]
  13. MELATONIN [Concomitant]
  14. VORICONAZOLE [Concomitant]

REACTIONS (2)
  - Death [Fatal]
  - Pneumonia [Not Recovered/Not Resolved]
